FAERS Safety Report 9822064 (Version 1)
Quarter: 2014Q1

REPORT INFORMATION
  Report Type: Spontaneous
  Country: ES (occurrence: None)
  Receive Date: 20140115
  Receipt Date: 20140115
  Transmission Date: 20141002
  Serious: Yes (Hospitalization)
  Sender: FDA-Public Use
  Company Number: 2014P000188

PATIENT
  Age: 87 Year
  Sex: Female

DRUGS (7)
  1. PHENYTOIN [Suspect]
     Indication: EPILEPSY
     Dosage: Q8H
  2. ACENOCOUMAROL [Suspect]
  3. METFORMIN/ SITALGLIPTIN [Concomitant]
  4. DILTIAZEM [Concomitant]
  5. TORASEMIDE [Concomitant]
  6. RAMIPRIL [Concomitant]
  7. HALOPERIDOL [Concomitant]

REACTIONS (11)
  - Ataxia [None]
  - Dizziness [None]
  - Lethargy [None]
  - Dysarthria [None]
  - Disorientation [None]
  - Depression [None]
  - Decreased appetite [None]
  - International normalised ratio increased [None]
  - Hypoalbuminaemia [None]
  - Toxicity to various agents [None]
  - Drug interaction [None]
